FAERS Safety Report 12074597 (Version 2)
Quarter: 2016Q1

REPORT INFORMATION
  Report Type: Report from Study
  Country: US (occurrence: US)
  Receive Date: 20160212
  Receipt Date: 20160218
  Transmission Date: 20160526
  Serious: No
  Sender: FDA-Public Use
  Company Number: PHEH2016US003489

PATIENT
  Age: 9 Year
  Sex: Male

DRUGS (1)
  1. ILARIS [Suspect]
     Active Substance: CANAKINUMAB
     Dosage: 150 MG, EVERY 4 WEEKS
     Route: 058

REACTIONS (6)
  - Joint swelling [Unknown]
  - Pharyngeal oedema [Unknown]
  - Rash [Unknown]
  - Pruritus [Unknown]
  - Oropharyngeal pain [Unknown]
  - Swelling [Unknown]

NARRATIVE: CASE EVENT DATE: 20160208
